FAERS Safety Report 20326889 (Version 1)
Quarter: 2022Q1

REPORT INFORMATION
  Report Type: Spontaneous
  Country: AT (occurrence: AT)
  Receive Date: 20220112
  Receipt Date: 20220112
  Transmission Date: 20220423
  Serious: Yes (Life-Threatening, Hospitalization, Other)
  Sender: FDA-Public Use
  Company Number: AT-LUPIN PHARMACEUTICALS INC.-2021-26837

PATIENT
  Age: 7 Month
  Sex: Male
  Weight: 7 kg

DRUGS (12)
  1. CIPROFLOXACIN [Suspect]
     Active Substance: CIPROFLOXACIN
     Indication: Staphylococcal infection
     Dosage: UNK
     Route: 065
     Dates: start: 2019
  2. CIPROFLOXACIN [Suspect]
     Active Substance: CIPROFLOXACIN
     Indication: Enterobacter infection
  3. VANCOMYCIN [Suspect]
     Active Substance: VANCOMYCIN
     Indication: Evidence based treatment
     Dosage: UNK
     Route: 065
     Dates: start: 2019
  4. LINEZOLID [Suspect]
     Active Substance: LINEZOLID
     Indication: Staphylococcal infection
     Dosage: UNK
     Route: 065
     Dates: start: 2019
  5. LINEZOLID [Suspect]
     Active Substance: LINEZOLID
     Indication: Enterobacter infection
  6. MEROPENEM [Suspect]
     Active Substance: MEROPENEM
     Indication: Enterobacter infection
     Dosage: UNK
     Route: 065
     Dates: start: 2019
  7. MEROPENEM [Suspect]
     Active Substance: MEROPENEM
     Indication: Staphylococcal infection
  8. GENTAMICIN [Suspect]
     Active Substance: GENTAMICIN
     Indication: Evidence based treatment
     Dosage: UNK
     Route: 065
     Dates: start: 2019
  9. FLUCONAZOLE [Suspect]
     Active Substance: FLUCONAZOLE
     Indication: Evidence based treatment
     Dosage: UNK
     Route: 065
     Dates: start: 2019
  10. FRESH FROZEN PLASMA [Concomitant]
     Active Substance: HUMAN PLASMA
     Indication: Septic shock
     Dosage: UNK
     Route: 065
     Dates: start: 2019
  11. PENTAGLOBIN [Concomitant]
     Active Substance: HUMAN IMMUNOGLOBULIN G
     Indication: Adjuvant therapy
     Dosage: UNK
     Route: 065
     Dates: start: 2019
  12. PENTOXIFYLLINE [Concomitant]
     Active Substance: PENTOXIFYLLINE
     Indication: Adjuvant therapy
     Dosage: UNK
     Route: 065
     Dates: start: 2019

REACTIONS (6)
  - Condition aggravated [Unknown]
  - Drug ineffective [Unknown]
  - Generalised oedema [Unknown]
  - Septic shock [Unknown]
  - Acute respiratory distress syndrome [Unknown]
  - Respiratory failure [Unknown]

NARRATIVE: CASE EVENT DATE: 20190101
